FAERS Safety Report 8905282 (Version 1)
Quarter: 2012Q4

REPORT INFORMATION
  Report Type: 
  Country: JP (occurrence: JP)
  Receive Date: 20121113
  Receipt Date: 20121113
  Transmission Date: 20130627
  Serious: Yes (Hospitalization)
  Sender: FDA-Public Use
  Company Number: JP-TEVA-366351ISR

PATIENT
  Age: 8 None
  Sex: Male

DRUGS (2)
  1. PREDNISOLONE [Suspect]
     Indication: MYASTHENIA GRAVIS
     Dosage: 25.5 mg/day
     Route: 065
  2. TACROLIMUS [Suspect]
     Indication: MYASTHENIA GRAVIS
     Dosage: 2 Milligram Daily;
     Route: 065

REACTIONS (1)
  - Cryptococcal cutaneous infection [Recovering/Resolving]
